FAERS Safety Report 6643919-3 (Version None)
Quarter: 2010Q1

REPORT INFORMATION
  Report Type: 
  Country: None (occurrence: None)
  Receive Date: 20100322
  Receipt Date: 20100310
  Transmission Date: 20100710
  Serious: Yes (Other)
  Sender: FDA-Public Use
  Company Number: US-ELI_LILLY_AND_COMPANY-US200910004070

PATIENT
  Sex: Male
  Weight: 83.9 kg

DRUGS (6)
  1. BYETTA [Suspect]
     Dosage: UNK, UNK
     Dates: start: 20060209, end: 20060429
  2. AVANDIA [Concomitant]
  3. GLUCOPHAGE [Concomitant]
  4. ALTACE [Concomitant]
  5. ZOCOR [Concomitant]
  6. TYLENOL                                 /SCH/ [Concomitant]

REACTIONS (4)
  - ABDOMINAL HERNIA [None]
  - CHOLECYSTITIS ACUTE [None]
  - PANCREATITIS [None]
  - RENAL DISORDER [None]
